FAERS Safety Report 21085899 (Version 2)
Quarter: 2024Q3

REPORT INFORMATION
  Report Type: Spontaneous
  Country: FR (occurrence: FR)
  Receive Date: 20220715
  Receipt Date: 20240723
  Transmission Date: 20241016
  Serious: No
  Sender: ALKEM
  Company Number: FR-ALKEM LABORATORIES LIMITED-FR-ALKEM-2022-05647

PATIENT
  Age: 46 Year
  Sex: Female

DRUGS (8)
  1. DRONABINOL [Suspect]
     Active Substance: DRONABINOL
     Indication: Neuralgia
     Dosage: 15 MILLIGRAM 2 CAPSULES 3 TIMES DAILY
     Route: 048
     Dates: start: 20211027, end: 20220407
  2. DRONABINOL [Suspect]
     Active Substance: DRONABINOL
     Dosage: 5 MILLIGRAM  2 CAPSULES DAILY
     Route: 048
     Dates: start: 20220408, end: 20220411
  3. DRONABINOL [Suspect]
     Active Substance: DRONABINOL
     Dosage: 2.5 MILLIGRAM
     Route: 048
     Dates: start: 20220520
  4. DRONABINOL [Suspect]
     Active Substance: DRONABINOL
     Dosage: UNK (CAPSULE MOLLE) (RESTARTED)
     Route: 048
     Dates: start: 20220520
  5. DRONABINOL [Suspect]
     Active Substance: DRONABINOL
     Dosage: 12.5 MILLIGRAM / 2 CAPSULES IN THE MORNING, 1 AT NOON AND 2 IN THE EVENING
     Route: 048
     Dates: end: 20231222
  6. DRONABINOL [Suspect]
     Active Substance: DRONABINOL
     Dosage: 5 MILLIGRAM, TID (SOFT CAPSULE) (2 IN THE MORNING, 1 AT NOON, AND 2 IN THE EVENING)
     Route: 065
  7. DRONABINOL [Suspect]
     Active Substance: DRONABINOL
     Dosage: 12.5 MILLIGRAM / 2 CAPSULES IN THE MORNING, 1 AT NOON AND 2 IN THE EVENING
     Route: 048
     Dates: start: 20240426
  8. KETAMINE [Concomitant]
     Active Substance: KETAMINE
     Indication: Product used for unknown indication
     Dosage: UNK
     Route: 058

REACTIONS (8)
  - Decreased appetite [Not Recovered/Not Resolved]
  - Nausea [Not Recovered/Not Resolved]
  - Anal incontinence [Recovered/Resolved]
  - Diarrhoea [Recovered/Resolved]
  - Therapy interrupted [Unknown]
  - Off label use [Unknown]
  - Product prescribing issue [Unknown]
  - Inappropriate schedule of product administration [Unknown]

NARRATIVE: CASE EVENT DATE: 20220328
